FAERS Safety Report 7854744-X (Version None)
Quarter: 2011Q4

REPORT INFORMATION
  Report Type: 
  Country: None (occurrence: None)
  Receive Date: 20111026
  Receipt Date: 20110823
  Transmission Date: 20120403
  Serious: No
  Sender: FDA-Public Use
  Company Number: US-MUTUAL PHARMACEUTICAL COMPANY, INC.-CLCY20110113

PATIENT
  Sex: Female
  Weight: 54.48 kg

DRUGS (9)
  1. COLCRYS [Suspect]
     Indication: GOUT
     Route: 048
     Dates: start: 20110725
  2. FUROSEMIDE [Concomitant]
     Indication: RENAL DISORDER
     Route: 048
  3. CENTRUM SILVER [Concomitant]
     Indication: VITAMIN SUPPLEMENTATION
     Route: 048
  4. CARVEDILOL [Concomitant]
     Route: 048
  5. ASCORBIC ACID [Concomitant]
     Indication: VITAMIN SUPPLEMENTATION
     Route: 048
  6. VITAMIN E [Concomitant]
     Indication: VITAMIN SUPPLEMENTATION
     Route: 048
  7. TRAMADOL HCL [Concomitant]
     Indication: ARTHRITIS
     Route: 048
  8. PROMETHAZINE [Concomitant]
     Indication: NAUSEA
     Route: 048
  9. ASPIRIN [Concomitant]
     Indication: CARDIAC DISORDER
     Route: 048

REACTIONS (2)
  - DIARRHOEA [None]
  - DRUG EFFECT DECREASED [None]
